FAERS Safety Report 6439831-5 (Version None)
Quarter: 2009Q4

REPORT INFORMATION
  Report Type: 
  Country: None (occurrence: None)
  Receive Date: 20091112
  Receipt Date: 20091112
  Transmission Date: 20100525
  Serious: Yes (Hospitalization)
  Sender: FDA-Public Use
  Company Number: None

PATIENT
  Sex: Female
  Weight: 58.9676 kg

DRUGS (1)
  1. ZYPREXA ZYDIS [Suspect]
     Dosage: 5 MG X 1 DOSE PO
     Route: 048
     Dates: start: 20091109

REACTIONS (5)
  - BLOOD PRESSURE INCREASED [None]
  - HEADACHE [None]
  - RASH [None]
  - URTICARIA [None]
  - VOMITING [None]
